FAERS Safety Report 16541210 (Version 13)
Quarter: 2022Q4

REPORT INFORMATION
  Report Type: Report from Study
  Country: CL (occurrence: CL)
  Receive Date: 20190708
  Receipt Date: 20221202
  Transmission Date: 20230112
  Serious: Yes (Hospitalization, Other)
  Sender: FDA-Public Use
  Company Number: CL-BRISTOL-MYERS SQUIBB COMPANY-BMS-2019-034418

PATIENT
  Age: 79 Year
  Sex: Male
  Weight: 88 kg

DRUGS (3)
  1. RUCAPARIB [Suspect]
     Active Substance: RUCAPARIB
     Indication: Prostate cancer
     Dosage: PRIOR TO THE EVENT ONSET, PATIENT RECEIVED MOST RECENT DOSE OF 500 MG ON 24-MAR-2019.
     Route: 048
     Dates: start: 20181023
  2. RUCAPARIB [Suspect]
     Active Substance: RUCAPARIB
     Route: 048
     Dates: start: 20190324, end: 20190324
  3. LOSARTAN [Concomitant]
     Active Substance: LOSARTAN
     Indication: Product used for unknown indication
     Route: 048
     Dates: start: 2014

REACTIONS (2)
  - Acute kidney injury [Not Recovered/Not Resolved]
  - Neutropenia [Recovered/Resolved]

NARRATIVE: CASE EVENT DATE: 20190325
